FAERS Safety Report 9366175 (Version 1)
Quarter: 2013Q2

REPORT INFORMATION
  Report Type: Spontaneous
  Country: US (occurrence: US)
  Receive Date: 20130625
  Receipt Date: 20130625
  Transmission Date: 20140414
  Serious: Yes (Death)
  Sender: FDA-Public Use
  Company Number: US-UCBSA-089662

PATIENT
  Sex: 0

DRUGS (1)
  1. KEPPRA [Suspect]
     Route: 064

REACTIONS (2)
  - Cardiac failure [Fatal]
  - Foetal exposure during pregnancy [Recovered/Resolved]
